FAERS Safety Report 20416437 (Version 2)
Quarter: 2022Q1

REPORT INFORMATION
  Report Type: Spontaneous
  Country: ES (occurrence: ES)
  Receive Date: 20220202
  Receipt Date: 20220321
  Transmission Date: 20220423
  Serious: Yes (Hospitalization, Other)
  Sender: FDA-Public Use
  Company Number: ES-009507513-2201ESP003681

PATIENT
  Age: 74 Year
  Sex: Male

DRUGS (3)
  1. PACLITAXEL [Suspect]
     Active Substance: PACLITAXEL
     Indication: Squamous cell carcinoma of lung
     Dosage: 200 MILLIGRAM/SQ. METER, Q3W
     Route: 065
     Dates: start: 20210114
  2. PEMBROLIZUMAB [Suspect]
     Active Substance: PEMBROLIZUMAB
     Indication: Squamous cell carcinoma of lung
     Dosage: 200 MILLIGRAM, Q3W
     Route: 065
     Dates: start: 20210114, end: 202109
  3. CARBOPLATIN [Suspect]
     Active Substance: CARBOPLATIN
     Indication: Squamous cell carcinoma of lung
     Dosage: AUC 6, Q3W
     Route: 065
     Dates: start: 20210114

REACTIONS (6)
  - Radiation necrosis [Unknown]
  - COVID-19 [Not Recovered/Not Resolved]
  - Tubulointerstitial nephritis [Recovering/Resolving]
  - Epilepsy [Unknown]
  - Malignant neoplasm progression [Not Recovered/Not Resolved]
  - Therapy partial responder [Not Recovered/Not Resolved]

NARRATIVE: CASE EVENT DATE: 20210101
